FAERS Safety Report 17101064 (Version 1)
Quarter: 2019Q4

REPORT INFORMATION
  Report Type: Spontaneous
  Country: US (occurrence: US)
  Receive Date: 20191202
  Receipt Date: 20191202
  Transmission Date: 20200122
  Serious: No
  Sender: FDA-Public Use
  Company Number: US-SA-2019SA330273

PATIENT
  Age: 56 Year
  Sex: Male

DRUGS (1)
  1. PRALUENT [Suspect]
     Active Substance: ALIROCUMAB
     Indication: BLOOD CHOLESTEROL INCREASED
     Dosage: 75 MG, QOW
     Dates: start: 2018

REACTIONS (3)
  - Product storage error [Unknown]
  - Gastrointestinal pain [Unknown]
  - Testicular pain [Unknown]

NARRATIVE: CASE EVENT DATE: 20191123
